FAERS Safety Report 4848567-3 (Version None)
Quarter: 2005Q4

REPORT INFORMATION
  Report Type: 
  Country: None (occurrence: None)
  Receive Date: 20051208
  Receipt Date: 20051130
  Transmission Date: 20060501
  Serious: Yes (Hospitalization, Other)
  Sender: FDA-Public Use
  Company Number: US-JNJFOC-20051101128

PATIENT
  Sex: Female
  Weight: 74.84 kg

DRUGS (7)
  1. REMICADE [Suspect]
     Route: 042
  2. REMICADE [Suspect]
     Indication: CROHN'S DISEASE
     Route: 042
  3. REMICADE [Suspect]
     Route: 042
  4. BIRTH CONTROL PILLS [Concomitant]
  5. PREVACID [Concomitant]
     Indication: GASTROINTESTINAL DISORDER
  6. HIGH-DOSE STEROIDS [Concomitant]
     Indication: CROHN'S DISEASE
  7. HIGH-DOSE STEROIDS [Concomitant]

REACTIONS (1)
  - ASTROCYTOMA [None]
